FAERS Safety Report 22095416 (Version 2)
Quarter: 2023Q1

REPORT INFORMATION
  Report Type: Spontaneous
  Country: US (occurrence: US)
  Receive Date: 20230314
  Receipt Date: 20230317
  Transmission Date: 20230418
  Serious: Yes (Life-Threatening, Other)
  Sender: FDA-Public Use
  Company Number: US-PFIZER INC-PV202300046535

PATIENT
  Sex: Female

DRUGS (1)
  1. SOLU-MEDROL [Suspect]
     Active Substance: METHYLPREDNISOLONE SODIUM SUCCINATE
     Indication: Adrenal insufficiency
     Dosage: UNK

REACTIONS (7)
  - Pancreatic disorder [Recovered/Resolved]
  - Dyspepsia [Recovered/Resolved]
  - Blood glucose increased [Recovered/Resolved]
  - Adrenocortical insufficiency acute [Not Recovered/Not Resolved]
  - Weight increased [Unknown]
  - Postprandial hypoglycaemia [Unknown]
  - Asthenia [Unknown]
